FAERS Safety Report 24218901 (Version 1)
Quarter: 2024Q3

REPORT INFORMATION
  Report Type: Spontaneous
  Country: US (occurrence: None)
  Receive Date: 20240816
  Receipt Date: 20240816
  Transmission Date: 20241017
  Serious: Yes (Hospitalization)
  Sender: Public
  Company Number: None

PATIENT
  Sex: Male

DRUGS (1)
  1. LENALIDOMIDE [Suspect]
     Active Substance: LENALIDOMIDE
     Indication: Plasma cell myeloma
     Dosage: FREQUENCY : EVERY THREE WEEKS;?
     Route: 048
     Dates: start: 202407

REACTIONS (2)
  - Wrong technique in product usage process [None]
  - Circumstance or information capable of leading to medication error [None]
